FAERS Safety Report 25090330 (Version 1)
Quarter: 2025Q1

REPORT INFORMATION
  Report Type: Spontaneous
  Country: US (occurrence: None)
  Receive Date: 20250318
  Receipt Date: 20250318
  Transmission Date: 20250409
  Serious: Yes (Hospitalization, Other)
  Sender: FDA-CTU
  Company Number: None

PATIENT
  Age: 67 Year
  Sex: Male

DRUGS (2)
  1. MOMELOTINIB [Suspect]
     Active Substance: MOMELOTINIB
  2. ASPIRIN [Concomitant]
     Active Substance: ASPIRIN

REACTIONS (8)
  - Swelling face [None]
  - Hot flush [None]
  - Flushing [None]
  - Feeling abnormal [None]
  - Therapy cessation [None]
  - Neuropathy peripheral [None]
  - Rash [None]
  - Skin exfoliation [None]

NARRATIVE: CASE EVENT DATE: 20231222
